FAERS Safety Report 7710044-X (Version None)
Quarter: 2011Q3

REPORT INFORMATION
  Report Type: 
  Country: None (occurrence: None)
  Receive Date: 20110825
  Receipt Date: 20110816
  Transmission Date: 20111222
  Serious: Yes (Other)
  Sender: FDA-Public Use
  Company Number: PHHY2011US10330

PATIENT
  Sex: Female

DRUGS (4)
  1. REVLIMID [Concomitant]
  2. EXJADE [Suspect]
     Dosage: 2500 MG, QD
     Route: 048
  3. RED BLOOD CELLS [Concomitant]
  4. EXJADE [Suspect]
     Indication: MYELODYSPLASTIC SYNDROME
     Dosage: 1500 MG, DAILY
     Route: 048

REACTIONS (4)
  - VISUAL IMPAIRMENT [None]
  - ULCER HAEMORRHAGE [None]
  - HAEMOGLOBIN DECREASED [None]
  - DIARRHOEA [None]
